FAERS Safety Report 16974941 (Version 1)
Quarter: 2019Q4

REPORT INFORMATION
  Report Type: Spontaneous
  Country: JP (occurrence: JP)
  Receive Date: 20191030
  Receipt Date: 20191030
  Transmission Date: 20200122
  Serious: Yes (Other)
  Sender: FDA-Public Use
  Company Number: JP-MYLANLABS-2019M1102490

PATIENT
  Age: 7 Decade
  Sex: Male

DRUGS (1)
  1. RANITIDINE MYLAN [Suspect]
     Active Substance: RANITIDINE HYDROCHLORIDE
     Indication: PRODUCT USED FOR UNKNOWN INDICATION
     Dosage: UNK
     Route: 048
     Dates: end: 201910

REACTIONS (3)
  - Laryngeal cancer [Unknown]
  - Prostate cancer [Unknown]
  - Gastric cancer [Unknown]
